FAERS Safety Report 8402400-1 (Version None)
Quarter: 2012Q2

REPORT INFORMATION
  Report Type: 
  Country: None (occurrence: None)
  Receive Date: 20120601
  Receipt Date: 20120530
  Transmission Date: 20120825
  Serious: Yes (Hospitalization)
  Sender: FDA-Public Use
  Company Number: IT-PFIZER INC-2012071571

PATIENT
  Age: 83 Year
  Sex: Female

DRUGS (6)
  1. HALCION [Suspect]
     Dosage: 1 DF, 1X/DAY
     Route: 048
     Dates: start: 20111113
  2. LANSOPRAZOLE [Concomitant]
     Dosage: 15 MG, 1X/DAY
     Route: 048
  3. LOSARTAN POTASSIUM [Concomitant]
     Dosage: 50 MG, 1X/DAY
     Route: 048
  4. ASPIRIN [Concomitant]
     Dosage: 100 MG, 1X/DAY
     Route: 048
  5. DIAMICRON [Concomitant]
     Dosage: 30 MG, 1X/DAY
     Route: 048
  6. PAROXETINE [Concomitant]
     Dosage: 20 MG, 1X/DAY
     Route: 048

REACTIONS (1)
  - ABDOMINAL PAIN UPPER [None]
